FAERS Safety Report 4526747-4 (Version None)
Quarter: 2004Q4

REPORT INFORMATION
  Report Type: 
  Country: None (occurrence: None)
  Receive Date: 20041213
  Receipt Date: 20041206
  Transmission Date: 20050328
  Serious: Yes (Other)
  Sender: FDA-Public Use
  Company Number: OMPQ-PR-0412S-1403

PATIENT
  Age: 68 Year
  Sex: Female
  Weight: 117.2 kg

DRUGS (10)
  1. OMNIPAQUE 140 [Suspect]
     Indication: CORONARY ARTERY DISEASE
     Dosage: 170 ML, SINGLE DOSE I.A.
     Route: 013
     Dates: start: 20040422, end: 20040422
  2. INSULIN [Concomitant]
  3. METHYLPREDNISOLONE SODIUM SUCCINATE (SOLU-MEDROL) [Concomitant]
  4. DIPHENHYDRAMINE HCL (BENADRYL) [Concomitant]
  5. TAGAMET [Concomitant]
  6. COMBIVENT [Concomitant]
  7. FISH OIL [Concomitant]
  8. VITAMIN C [Concomitant]
  9. VITAMIN E [Concomitant]
  10. DIOVAN [Concomitant]

REACTIONS (6)
  - DERMATITIS EXFOLIATIVE [None]
  - DISEASE RECURRENCE [None]
  - POST PROCEDURAL COMPLICATION [None]
  - RASH ERYTHEMATOUS [None]
  - RASH GENERALISED [None]
  - RASH PRURITIC [None]
